FAERS Safety Report 10374586 (Version 1)
Quarter: 2014Q1

REPORT INFORMATION
  Report Type: Spontaneous
  Country: US (occurrence: None)
  Receive Date: 20140306
  Receipt Date: 20140306
  Transmission Date: 20141002
  Serious: Yes (Other)
  Sender: FDA-Public Use
  Company Number: 163-21880-12110154

PATIENT
  Age: 64 Year
  Sex: Female

DRUGS (26)
  1. REVLIMID (LENALIDOMIDE) (10 MILLIGRAM, CAPSULES) [Suspect]
     Indication: PLASMA CELL MYELOMA
     Route: 048
     Dates: start: 201005
  2. CEFTRIAXONE [Concomitant]
  3. RBCS (BLOOD AND RELATED PRODUCTS) [Concomitant]
  4. ZOMETA (ZOLEDRONIC ACID) (SOLUTION) [Concomitant]
  5. KEFLEX (CEFALEXIN MONOHYDRATE) [Concomitant]
  6. VELCADE (BORTEZOMIB) [Concomitant]
  7. UNK [Concomitant]
  8. DEXAMETHASONE [Concomitant]
  9. ONDANSETRON (TABLETS) [Concomitant]
  10. OXCARBAZEPINE [Concomitant]
  11. GAMUNEX-C (IMMUNOGLOBULIN) (SOLUTION) [Concomitant]
  12. LISINOPRIL (20 MILLIGRAM, TABLETS) [Concomitant]
  13. COREG (CARVEDILOL) [Concomitant]
  14. ULREA (CARVEDILOL) [Concomitant]
  15. PROCHLORPERAZINE MALEATE [Concomitant]
  16. ACYCLOVIR (ACICLOVIR) [Concomitant]
  17. FUROSEMIDE [Concomitant]
  18. PRAVASTATIN [Concomitant]
  19. RESTASIS (CICLOSPORIN) [Concomitant]
  20. ZOLPIDEM [Concomitant]
  21. FLUTICASONE [Concomitant]
  22. FOLIC ACID [Concomitant]
  23. CYANOCOBALAMIN/ VITAMIN B-12 [Concomitant]
  24. ALPHA LIPOIC ACID (THIOCTIC ACID) [Concomitant]
  25. ASPIRIN (ACETYLSALICYLIC ACID) [Concomitant]
  26. IVIG (IMMUNOGLOBULIN) [Concomitant]

REACTIONS (1)
  - Plasma cell myeloma [None]
